FAERS Safety Report 17660881 (Version 1)
Quarter: 2020Q2

REPORT INFORMATION
  Report Type: Spontaneous
  Country: US (occurrence: US)
  Receive Date: 20200413
  Receipt Date: 20200413
  Transmission Date: 20200713
  Serious: No
  Sender: FDA-Public Use
  Company Number: US-TEVA-2020-US-1222685

PATIENT
  Age: 61 Year
  Sex: Female
  Weight: 60.9 kg

DRUGS (12)
  1. AJOVY [Suspect]
     Active Substance: FREMANEZUMAB-VFRM
     Indication: MIGRAINE
     Dosage: LAST DOSE : 07-APR-2020
     Route: 065
     Dates: start: 2019
  2. CYMBALTA [Concomitant]
     Active Substance: DULOXETINE HYDROCHLORIDE
     Indication: FIBROMYALGIA
     Route: 065
  3. ASPIRIN. [Concomitant]
     Active Substance: ASPIRIN
     Dosage: 81 MILLIGRAM DAILY;
     Route: 065
  4. ESTRADIOL. [Concomitant]
     Active Substance: ESTRADIOL
     Indication: ILL-DEFINED DISORDER
     Route: 065
  5. XANAX [Concomitant]
     Active Substance: ALPRAZOLAM
     Indication: ANXIETY
     Dosage: AS NEEDED
     Route: 065
  6. MAXALT PRN [Concomitant]
     Indication: MIGRAINE
     Route: 065
  7. TROKENDY [Concomitant]
     Indication: MIGRAINE
     Route: 065
  8. REPATHA [Concomitant]
     Active Substance: EVOLOCUMAB
     Indication: BLOOD CHOLESTEROL
     Route: 065
  9. METOPROLOL ER [Concomitant]
     Active Substance: METOPROLOL SUCCINATE
     Indication: MIGRAINE
     Dosage: 200 MILLIGRAM DAILY;
     Route: 065
  10. NORVASC [Concomitant]
     Active Substance: AMLODIPINE BESYLATE
     Indication: BLOOD PRESSURE MEASUREMENT
     Route: 065
  11. MULTIVITAMIN [Concomitant]
     Active Substance: VITAMINS
     Route: 065
  12. FIORICET [Concomitant]
     Active Substance: ACETAMINOPHEN\BUTALBITAL\CAFFEINE
     Indication: MIGRAINE
     Route: 065

REACTIONS (5)
  - Injection site swelling [Unknown]
  - Injection site pruritus [Unknown]
  - Injection site rash [Unknown]
  - Injection site erythema [Unknown]
  - Discomfort [Unknown]

NARRATIVE: CASE EVENT DATE: 20200407
